FAERS Safety Report 21671622 (Version 1)
Quarter: 2022Q4

REPORT INFORMATION
  Report Type: Report from Study
  Country: CA (occurrence: CA)
  Receive Date: 20221202
  Receipt Date: 20221202
  Transmission Date: 20230113
  Serious: Yes (Hospitalization)
  Sender: FDA-Public Use
  Company Number: CA-CELLTRION INC.-2022CA020132

PATIENT

DRUGS (1)
  1. TRUXIMA [Suspect]
     Active Substance: RITUXIMAB-ABBS
     Indication: Asthma
     Dosage: 682.5 MG
     Route: 042
     Dates: start: 20220926

REACTIONS (3)
  - Malaise [Unknown]
  - Intentional dose omission [Unknown]
  - Off label use [Unknown]
